FAERS Safety Report 10619507 (Version 1)
Quarter: 2014Q4

REPORT INFORMATION
  Report Type: Spontaneous
  Country: US (occurrence: None)
  Receive Date: 20141201
  Receipt Date: 20141201
  Transmission Date: 20150529
  Serious: Yes (Death, Hospitalization)
  Sender: FDA-Public Use
  Company Number: None

PATIENT
  Age: 33 Year
  Sex: Female

DRUGS (1)
  1. EXCEDRIN [Suspect]
     Active Substance: ACETAMINOPHEN\ASPIRIN\CAFFEINE
     Indication: MIGRAINE
     Dates: start: 20141010

REACTIONS (4)
  - Cardiac arrest [None]
  - Pulmonary embolism [None]
  - Post procedural haemorrhage [None]
  - Nephrolithiasis [None]

NARRATIVE: CASE EVENT DATE: 20141012
